FAERS Safety Report 6166138-6 (Version None)
Quarter: 2009Q2

REPORT INFORMATION
  Report Type: 
  Country: None (occurrence: None)
  Receive Date: 20090422
  Receipt Date: 20090409
  Transmission Date: 20091009
  Serious: Yes (Other)
  Sender: FDA-Public Use
  Company Number: CERZ-1000565

PATIENT
  Age: 51 Year
  Sex: Female
  Weight: 71 kg

DRUGS (6)
  1. CEREZYME [Suspect]
     Indication: GAUCHER'S DISEASE
     Dosage: 60 U/KG, Q2W, INTRAVENOUS
     Route: 042
     Dates: start: 20081101
  2. PREDNISONE TAB [Concomitant]
  3. PROZAC [Concomitant]
  4. DYAZIDE [Concomitant]
  5. LOVASTATIN [Concomitant]
  6. LEVOXYL [Concomitant]

REACTIONS (2)
  - MYELODYSPLASTIC SYNDROME [None]
  - MYELOFIBROSIS [None]
